FAERS Safety Report 25859686 (Version 1)
Quarter: 2025Q3

REPORT INFORMATION
  Report Type: Spontaneous
  Country: CA (occurrence: CA)
  Receive Date: 20250929
  Receipt Date: 20250929
  Transmission Date: 20251020
  Serious: Yes (Other)
  Sender: NORDIC PHARMA
  Company Number: CA-NORDICGR-058615

PATIENT
  Age: 41 Year
  Sex: Female

DRUGS (17)
  1. METHOTREXATE [Suspect]
     Active Substance: METHOTREXATE
     Indication: Dermatitis papillaris capillitii
     Route: 065
  2. CLOBETASOL [Concomitant]
     Active Substance: CLOBETASOL
     Indication: Dermatitis papillaris capillitii
     Route: 061
  3. CLINDAMYCIN HYDROCHLORIDE [Concomitant]
     Active Substance: CLINDAMYCIN HYDROCHLORIDE
     Indication: Dermatitis papillaris capillitii
     Route: 061
  4. DOXYCYCLINE [Concomitant]
     Active Substance: DOXYCYCLINE
     Indication: Dermatitis atopic
     Route: 065
  5. Betamethasone dipropionate / salicylic acid [Concomitant]
     Indication: Dermatitis papillaris capillitii
     Route: 061
  6. FUSIDIC ACID [Concomitant]
     Active Substance: FUSIDIC ACID
     Indication: Dermatitis atopic
     Route: 065
  7. FUSIDIC ACID [Concomitant]
     Active Substance: FUSIDIC ACID
     Indication: Dermatitis atopic
     Route: 061
  8. TRIAMCINOLONE [Concomitant]
     Active Substance: TRIAMCINOLONE
     Indication: Dermatitis atopic
     Route: 065
  9. TRIAMCINOLONE [Concomitant]
     Active Substance: TRIAMCINOLONE
     Indication: Dermatitis atopic
     Route: 026
  10. MINOCYCLINE [Concomitant]
     Active Substance: MINOCYCLINE HYDROCHLORIDE
     Indication: Dermatitis atopic
     Route: 065
  11. Betamethasone valerate / salicylic acid [Concomitant]
     Indication: Dermatitis atopic
     Route: 061
  12. Betamethasone valerate / salicylic acid [Concomitant]
     Indication: Dermatitis atopic
     Route: 065
  13. CLINDAMYCIN PHOSPHATE [Concomitant]
     Active Substance: CLINDAMYCIN PHOSPHATE
     Indication: Dermatitis papillaris capillitii
     Route: 061
  14. CLINDAMYCIN PHOSPHATE [Concomitant]
     Active Substance: CLINDAMYCIN PHOSPHATE
     Indication: Dermatitis papillaris capillitii
     Route: 065
  15. DUPILUMAB [Concomitant]
     Active Substance: DUPILUMAB
     Indication: Dermatitis papillaris capillitii
     Route: 065
  16. SALICYLIC ACID [Concomitant]
     Active Substance: SALICYLIC ACID
     Indication: Dermatitis papillaris capillitii
     Route: 061
  17. SALICYLIC ACID [Concomitant]
     Active Substance: SALICYLIC ACID
     Indication: Dermatitis papillaris capillitii
     Route: 065

REACTIONS (1)
  - Drug ineffective for unapproved indication [Recovered/Resolved]
